FAERS Safety Report 10519794 (Version 1)
Quarter: 2014Q4

REPORT INFORMATION
  Report Type: Spontaneous
  Country: US (occurrence: None)
  Receive Date: 20141014
  Receipt Date: 20141014
  Transmission Date: 20150528
  Serious: No
  Sender: FDA-Public Use
  Company Number: None

PATIENT
  Age: 74 Year
  Sex: Male

DRUGS (2)
  1. LINEZOLID. [Suspect]
     Active Substance: LINEZOLID
     Route: 042
     Dates: start: 20140706, end: 20140707
  2. DEXTROSE/HEPARIN [Suspect]
     Active Substance: DEXTROSE\HEPARIN
     Indication: DEEP VEIN THROMBOSIS
     Route: 042
     Dates: start: 20140703, end: 20140709

REACTIONS (3)
  - Anaemia [None]
  - Heparin-induced thrombocytopenia [None]
  - Thrombocytopenia [None]

NARRATIVE: CASE EVENT DATE: 20140711
